FAERS Safety Report 4812113-0 (Version None)
Quarter: 2005Q4

REPORT INFORMATION
  Report Type: 
  Country: None (occurrence: None)
  Receive Date: 20051028
  Receipt Date: 20040210
  Transmission Date: 20060501
  Serious: No
  Sender: FDA-Public Use
  Company Number: US-GLAXOSMITHKLINE-A0497750A

PATIENT
  Age: 15 Year
  Sex: Female
  Weight: 98 kg

DRUGS (6)
  1. ADVAIR DISKUS 100/50 [Suspect]
     Indication: ASTHMA
     Route: 055
  2. SINGULAIR [Concomitant]
     Route: 048
     Dates: start: 20020909
  3. ZYRTEC [Concomitant]
     Route: 048
     Dates: start: 20020909
  4. PEPCID [Concomitant]
  5. FLONASE [Concomitant]
  6. ALBUTEROL [Concomitant]

REACTIONS (1)
  - SWELLING FACE [None]
